FAERS Safety Report 6295147-1 (Version None)
Quarter: 2009Q4

REPORT INFORMATION
  Report Type: 
  Country: None (occurrence: None)
  Receive Date: 20090730
  Receipt Date: 20090724
  Transmission Date: 20100525
  Serious: Yes (Hospitalization, Other)
  Sender: FDA-Public Use
  Company Number: 2009SP015803

PATIENT
  Age: 58 Year
  Sex: Male
  Weight: 90.2658 kg

DRUGS (7)
  1. PEG-INTRON [Suspect]
     Indication: HEPATITIS C
     Dosage: 150 MCG, QW, SC
     Route: 058
     Dates: start: 20081209, end: 20090714
  2. BLINDED SCH 503034 (S-P) (HCV PROTEASE INHIBITOR) [Suspect]
     Indication: HEPATITIS C
     Dosage: 800 MG, TID; PO
     Route: 048
     Dates: start: 20090106, end: 20090716
  3. RIBAVIRIN [Suspect]
     Indication: HEPATITIS C
     Dosage: 600 MG, BID, PO; 400 MG, BID, PO
     Route: 048
     Dates: end: 20090716
  4. RIBAVIRIN [Suspect]
     Indication: HEPATITIS C
     Dosage: 600 MG, BID, PO; 400 MG, BID, PO
     Route: 048
     Dates: start: 20081209
  5. IBUPROFEN [Concomitant]
  6. ASPIRIN [Concomitant]
  7. PROCRIT [Concomitant]

REACTIONS (3)
  - NON-CARDIAC CHEST PAIN [None]
  - PLEURAL FIBROSIS [None]
  - PULMONARY MASS [None]
